FAERS Safety Report 4710605-6 (Version None)
Quarter: 2005Q3

REPORT INFORMATION
  Report Type: 
  Country: None (occurrence: None)
  Receive Date: 20050711
  Receipt Date: 20050620
  Transmission Date: 20060218
  Serious: Yes (Hospitalization)
  Sender: FDA-Public Use
  Company Number: PHBS2005AT08777

PATIENT
  Age: 76 Year
  Sex: Male

DRUGS (14)
  1. ZOMETA [Suspect]
     Indication: MULTIPLE MYELOMA
     Dosage: 4 MG, QMO
     Route: 042
     Dates: start: 20011011, end: 20050601
  2. AREDIA [Suspect]
     Indication: MULTIPLE MYELOMA
     Dates: start: 19981207
  3. CORTICOSTEROIDS [Concomitant]
  4. CITALOPRAM [Concomitant]
  5. SPIRIVA [Concomitant]
  6. SYMBICORT TURBUHALER [Concomitant]
  7. LOSEC [Concomitant]
  8. UNIFYL - SLOW RELEASE [Concomitant]
  9. SUPRADYN [Concomitant]
  10. TRITTICO [Concomitant]
  11. AMLODIPINE [Concomitant]
  12. LASIX [Concomitant]
  13. SULTANOL [Concomitant]
  14. UROSIN [Concomitant]

REACTIONS (2)
  - ASEPTIC NECROSIS BONE [None]
  - SURGERY [None]
